FAERS Safety Report 7449670-4 (Version None)
Quarter: 2011Q1

REPORT INFORMATION
  Report Type: 
  Country: None (occurrence: None)
  Receive Date: 20110302
  Receipt Date: 20110111
  Transmission Date: 20110831
  Serious: No
  Sender: FDA-Public Use
  Company Number: 023160

PATIENT
  Sex: Female

DRUGS (1)
  1. CIMZIA [Suspect]
     Indication: CROHN'S DISEASE
     Dosage: PFS (PRE FILLED SYRINGE, SUBCUTANEOUS
     Route: 058
     Dates: start: 20101101

REACTIONS (5)
  - ABDOMINAL PAIN [None]
  - UTERINE INFECTION [None]
  - CONSTIPATION [None]
  - MENORRHAGIA [None]
  - INJECTION SITE SWELLING [None]
